FAERS Safety Report 8513878-7 (Version None)
Quarter: 2012Q3

REPORT INFORMATION
  Report Type: 
  Country: None (occurrence: None)
  Receive Date: 20120717
  Receipt Date: 20120705
  Transmission Date: 20120928
  Serious: Yes (Death)
  Sender: FDA-Public Use
  Company Number: MX-SANOFI-AVENTIS-2012SA047786

PATIENT
  Age: 81 Year
  Sex: Male
  Weight: 39.2 kg

DRUGS (4)
  1. CABAZITAXEL [Suspect]
     Indication: PROSTATE CANCER METASTATIC
     Route: 042
     Dates: start: 20111221, end: 20111222
  2. FELODIPINE [Concomitant]
     Route: 048
     Dates: start: 20000101
  3. PREDNISONE [Suspect]
     Indication: PROSTATE CANCER METASTATIC
     Route: 048
     Dates: start: 20111221, end: 20120629
  4. CABAZITAXEL [Suspect]
     Route: 042
     Dates: start: 20120629, end: 20120629

REACTIONS (1)
  - DEATH [None]
